FAERS Safety Report 9161513 (Version 1)
Quarter: 2013Q1

REPORT INFORMATION
  Report Type: Spontaneous
  Country: GB (occurrence: GB)
  Receive Date: 20130313
  Receipt Date: 20130313
  Transmission Date: 20140127
  Serious: Yes (Disabling)
  Sender: FDA-Public Use
  Company Number: GB-TEVA-389213ISR

PATIENT
  Age: 86 Year
  Sex: Female

DRUGS (1)
  1. BISOPROLOL [Suspect]
     Indication: HYPERTENSION
     Route: 048
     Dates: start: 20130103, end: 20130106

REACTIONS (2)
  - Pain [Recovered/Resolved]
  - Dizziness [Recovered/Resolved]
